FAERS Safety Report 9843259 (Version 1)
Quarter: 2014Q1

REPORT INFORMATION
  Report Type: Report from Study
  Country: US (occurrence: US)
  Receive Date: 20140124
  Receipt Date: 20140124
  Transmission Date: 20141002
  Serious: Yes (Other)
  Sender: FDA-Public Use
  Company Number: US-ABBVIE-14P-163-1191664-00

PATIENT
  Sex: Female

DRUGS (4)
  1. HUMIRA [Suspect]
     Indication: RHEUMATOID ARTHRITIS
     Dates: start: 2009
  2. HUMIRA [Suspect]
     Dates: start: 201311
  3. LEVOTHYROXINE [Concomitant]
     Indication: PRODUCT USED FOR UNKNOWN INDICATION
  4. PERCOCET [Concomitant]
     Indication: PAIN

REACTIONS (3)
  - Arthritis [Recovering/Resolving]
  - Arthralgia [Recovering/Resolving]
  - Expired drug administered [Unknown]
